FAERS Safety Report 12891198 (Version 3)
Quarter: 2016Q4

REPORT INFORMATION
  Report Type: Spontaneous
  Country: US (occurrence: US)
  Receive Date: 20161027
  Receipt Date: 20161123
  Transmission Date: 20170207
  Serious: Yes (Other)
  Sender: FDA-Public Use
  Company Number: US-AMGEN-USASP2016147635

PATIENT
  Age: 43 Year
  Sex: Male
  Weight: 74 kg

DRUGS (10)
  1. PROCRIT [Suspect]
     Active Substance: ERYTHROPOIETIN
     Indication: NEPHROGENIC ANAEMIA
     Dosage: 20,000 UNITS, 1/MONTH
     Route: 058
     Dates: start: 20151229, end: 20160422
  2. PROCRIT [Suspect]
     Active Substance: ERYTHROPOIETIN
     Indication: CHRONIC KIDNEY DISEASE
     Dosage: 30,000 UNITS, QWK (1/WK X3, 1/MONTH X3)
     Route: 058
     Dates: start: 20160520, end: 20160908
  3. CENTRUM [Concomitant]
     Active Substance: VITAMINS
     Dosage: UNK UNK, 1 TABLESPOON QOD
  4. NEURONTIN [Concomitant]
     Active Substance: GABAPENTIN
     Indication: NEUROPATHY PERIPHERAL
     Dosage: 100 MG, DAILY
  5. HYDRALAZINE [Concomitant]
     Active Substance: HYDRALAZINE HYDROCHLORIDE
     Dosage: 25 MG, BID
  6. PROCRIT [Suspect]
     Active Substance: ERYTHROPOIETIN
     Dosage: 40,000 UNITS, ONE TIME ONLY
     Route: 058
     Dates: start: 20160922, end: 20160922
  7. ZEMPLAR [Concomitant]
     Active Substance: PARICALCITOL
     Indication: CHRONIC KIDNEY DISEASE
     Dosage: UNK UNK, QOD (EVERY OTHER DAY)
  8. PROCRIT [Suspect]
     Active Substance: ERYTHROPOIETIN
     Indication: RENAL FAILURE
     Dosage: 40,000 UNITS, 1/WEEK
     Route: 058
     Dates: start: 20160427, end: 20160506
  9. SODIUM BICARBONATE. [Concomitant]
     Active Substance: SODIUM BICARBONATE
     Dosage: 680 MG, DAILY
  10. FOLIC ACID. [Concomitant]
     Active Substance: FOLIC ACID
     Dosage: 1 MG, DAILY

REACTIONS (6)
  - Aplasia pure red cell [Not Recovered/Not Resolved]
  - Drug effect decreased [Not Recovered/Not Resolved]
  - Haemoglobin decreased [Not Recovered/Not Resolved]
  - Renal disorder [Not Recovered/Not Resolved]
  - Thrombosis [Unknown]
  - Drug ineffective [Unknown]

NARRATIVE: CASE EVENT DATE: 2016
